FAERS Safety Report 4280729-9 (Version None)
Quarter: 2004Q1

REPORT INFORMATION
  Report Type: 
  Country: None (occurrence: None)
  Receive Date: 20040129
  Receipt Date: 20031104
  Transmission Date: 20041129
  Serious: No
  Sender: FDA-Public Use
  Company Number: US-BRISTOL-MYERS SQUIBB COMPANY-12426094

PATIENT
  Age: 77 Year
  Sex: Female
  Weight: 90 kg

DRUGS (5)
  1. METAGLIP [Suspect]
     Indication: DIABETES MELLITUS
     Dosage: 5MG/500MG
     Route: 048
  2. GLUCOPHAGE XR [Suspect]
  3. LIPITOR [Concomitant]
  4. HYZAAR [Concomitant]
  5. LOTREL [Concomitant]

REACTIONS (2)
  - BLOOD GLUCOSE INCREASED [None]
  - CONSTIPATION [None]
